FAERS Safety Report 20568250 (Version 1)
Quarter: 2022Q1

REPORT INFORMATION
  Report Type: Spontaneous
  Country: FR (occurrence: FR)
  Receive Date: 20220308
  Receipt Date: 20220308
  Transmission Date: 20220423
  Serious: Yes (Other)
  Sender: FDA-Public Use
  Company Number: FR-MYLANLABS-2022M1018011

PATIENT
  Age: 67 Year
  Sex: Male

DRUGS (4)
  1. CARBOPLATIN [Suspect]
     Active Substance: CARBOPLATIN
     Indication: Skin squamous cell carcinoma metastatic
     Dosage: UNK, CYCLE (RECEIVED AS FIRST-LINE SYSTEMIC THERAPY)
     Route: 065
     Dates: start: 201802, end: 201806
  2. CETUXIMAB [Suspect]
     Active Substance: CETUXIMAB
     Indication: Skin squamous cell carcinoma metastatic
     Dosage: UNK, CYCLE (RECEIVED AS FIRST-LINE SYSTEMIC THERAPY)
     Route: 065
     Dates: start: 201802, end: 201806
  3. CETUXIMAB [Suspect]
     Active Substance: CETUXIMAB
     Dosage: 500 MILLIGRAM/SQ. METER, CYCLE, ON DAY 1 EVERY 3 WEEKS; RECEIVED CETUXIMAB 500MG/M2 ON DAY1...
     Route: 065
  4. PEMBROLIZUMAB [Suspect]
     Active Substance: PEMBROLIZUMAB
     Indication: Skin squamous cell carcinoma metastatic
     Dosage: UNK, CYCLE (SECOND LINE PEMBROLIZUMAB MONOTHERAPY)
     Route: 065
     Dates: start: 201806

REACTIONS (1)
  - Treatment failure [Unknown]
